FAERS Safety Report 13704624 (Version 1)
Quarter: 2017Q2

REPORT INFORMATION
  Report Type: Spontaneous
  Country: US (occurrence: US)
  Receive Date: 20170629
  Receipt Date: 20170629
  Transmission Date: 20170830
  Serious: Yes (Life-Threatening, Hospitalization)
  Sender: FDA-Public Use
  Company Number: None

PATIENT
  Age: 25 Year
  Sex: Female
  Weight: 63 kg

DRUGS (4)
  1. PERCOCET [Concomitant]
     Active Substance: ACETAMINOPHEN\OXYCODONE HYDROCHLORIDE
  2. BACLOFEN. [Concomitant]
     Active Substance: BACLOFEN
  3. CHANTIX [Suspect]
     Active Substance: VARENICLINE TARTRATE
     Indication: SMOKING CESSATION THERAPY
     Dosage: ?          OTHER STRENGTH:MG;QUANTITY:1 TABLET(S); TWICE A DAY ORAL?
     Route: 048
  4. PROZAC [Concomitant]
     Active Substance: FLUOXETINE HYDROCHLORIDE

REACTIONS (2)
  - Road traffic accident [None]
  - Loss of consciousness [None]

NARRATIVE: CASE EVENT DATE: 20170626
